FAERS Safety Report 4615600-3 (Version None)
Quarter: 2005Q1

REPORT INFORMATION
  Report Type: 
  Country: None (occurrence: None)
  Receive Date: 20050317
  Receipt Date: 20050301
  Transmission Date: 20050727
  Serious: Yes (Death, Other)
  Sender: FDA-Public Use
  Company Number: 2005BI000600

PATIENT
  Sex: Male

DRUGS (2)
  1. AVONEX [Suspect]
     Indication: DISEASE PROGRESSION
     Dosage: IM
     Route: 030
  2. AVONEX [Suspect]
     Indication: MULTIPLE SCLEROSIS
     Dosage: IM
     Route: 030

REACTIONS (3)
  - CARDIAC DISORDER [None]
  - EMBOLISM [None]
  - LUNG DISORDER [None]
